FAERS Safety Report 9259048 (Version 1)
Quarter: 2013Q2

REPORT INFORMATION
  Report Type: Report from Study
  Country: US (occurrence: US)
  Receive Date: 20130426
  Receipt Date: 20130426
  Transmission Date: 20140414
  Serious: Yes (Other)
  Sender: FDA-Public Use
  Company Number: US-ABBOTT-13P-163-1078924-00

PATIENT
  Age: 46 Year
  Sex: Female

DRUGS (7)
  1. HUMIRA [Suspect]
     Indication: RHEUMATOID ARTHRITIS
     Dates: start: 200312, end: 200402
  2. HUMIRA [Suspect]
     Dates: end: 2006
  3. HUMIRA [Suspect]
  4. ZYRTEC [Concomitant]
     Indication: SEASONAL ALLERGY
  5. NASONEX [Concomitant]
     Indication: SEASONAL ALLERGY
     Dosage: SPRAY
  6. MOTRIN [Concomitant]
     Indication: PRODUCT USED FOR UNKNOWN INDICATION
  7. TYLENOL [Concomitant]
     Indication: PRODUCT USED FOR UNKNOWN INDICATION

REACTIONS (2)
  - Arrested labour [Recovered/Resolved]
  - Injection site haemorrhage [Recovered/Resolved]
